FAERS Safety Report 17617121 (Version 1)
Quarter: 2020Q2

REPORT INFORMATION
  Report Type: Spontaneous
  Country: MX (occurrence: MX)
  Receive Date: 20200402
  Receipt Date: 20200402
  Transmission Date: 20200713
  Serious: Yes (Other)
  Sender: FDA-Public Use
  Company Number: MX-TEIKOKU PHARMA USA-TPU2020-00174

PATIENT
  Age: 77 Year
  Sex: Female

DRUGS (4)
  1. BENTYL [Concomitant]
     Active Substance: DICYCLOMINE HYDROCHLORIDE
  2. TEMPRA [Concomitant]
     Active Substance: ACETAMINOPHEN
  3. VERSATIS [Suspect]
     Active Substance: LIDOCAINE
     Route: 061
  4. TEMGESIC [Concomitant]
     Active Substance: BUPRENORPHINE HYDROCHLORIDE

REACTIONS (10)
  - Arrhythmia [Unknown]
  - Hyperhidrosis [Unknown]
  - Anxiety [Unknown]
  - Discomfort [Unknown]
  - Heart rate increased [Unknown]
  - Swelling [Unknown]
  - Speech disorder [Unknown]
  - Peripheral coldness [Unknown]
  - Mental disorder [Unknown]
  - Amnesia [Unknown]

NARRATIVE: CASE EVENT DATE: 20200326
